FAERS Safety Report 6120117-3 (Version None)
Quarter: 2009Q1

REPORT INFORMATION
  Report Type: 
  Country: None (occurrence: None)
  Receive Date: 20090316
  Receipt Date: 20090311
  Transmission Date: 20090719
  Serious: Yes (Death)
  Sender: FDA-Public Use
  Company Number: US-GENENTECH-278996

PATIENT
  Age: 76 Year
  Sex: Male

DRUGS (1)
  1. TNKASE [Suspect]
     Indication: ISCHAEMIC STROKE
     Dosage: UNK
     Dates: start: 20070312

REACTIONS (2)
  - DEATH [None]
  - MEDICATION ERROR [None]
